FAERS Safety Report 20833700 (Version 2)
Quarter: 2022Q2

REPORT INFORMATION
  Report Type: Spontaneous
  Country: CA (occurrence: CA)
  Receive Date: 20220516
  Receipt Date: 20220525
  Transmission Date: 20220720
  Serious: Yes (Other)
  Sender: FDA-Public Use
  Company Number: CA-PFIZER INC-202200658967

PATIENT
  Sex: Female

DRUGS (2)
  1. TOFACITINIB CITRATE [Suspect]
     Active Substance: TOFACITINIB CITRATE
  2. CANAKINUMAB [Suspect]
     Active Substance: CANAKINUMAB

REACTIONS (5)
  - Cytopenia [Unknown]
  - Lung disorder [Recovering/Resolving]
  - Disease progression [Recovering/Resolving]
  - Therapy non-responder [Unknown]
  - Serum ferritin increased [Unknown]
